FAERS Safety Report 4975764-9 (Version None)
Quarter: 2006Q2

REPORT INFORMATION
  Report Type: 
  Country: None (occurrence: None)
  Receive Date: 20060411
  Receipt Date: 20060403
  Transmission Date: 20061013
  Serious: Yes (Other)
  Sender: FDA-Public Use
  Company Number: 2006047017

PATIENT
  Age: 51 Year
  Sex: Female

DRUGS (2)
  1. EPELIN KAPSEALS  (PHENYTOIN SODIUM) [Suspect]
     Indication: EPILEPSY
     Dosage: 200 MG (100 MG, 2 IN 1 D), ORAL
     Route: 048
     Dates: start: 19990101, end: 20051101
  2. PHENYTOIN [Suspect]
     Indication: EPILEPSY
     Dates: start: 20051101

REACTIONS (3)
  - CONDITION AGGRAVATED [None]
  - CONVULSION [None]
  - PHARMACEUTICAL PRODUCT COMPLAINT [None]
